FAERS Safety Report 23165177 (Version 1)
Quarter: 2023Q4

REPORT INFORMATION
  Report Type: Spontaneous
  Country: US (occurrence: US)
  Receive Date: 20231109
  Receipt Date: 20231109
  Transmission Date: 20240109
  Serious: Yes (Other)
  Sender: FDA-Public Use
  Company Number: US-PFIZER INC-PV202300180192

PATIENT
  Age: 17 Year
  Sex: Female

DRUGS (6)
  1. METHIMAZOLE [Suspect]
     Active Substance: METHIMAZOLE
     Indication: Graves^ disease
     Dosage: 10 MG, 2X/DAY
  2. IODINE [Suspect]
     Active Substance: IODINE
     Indication: Thyroidectomy
     Dosage: UNK
  3. PROPRANOLOL [Concomitant]
     Active Substance: PROPRANOLOL HYDROCHLORIDE
     Indication: Graves^ disease
     Dosage: UNK
  4. FLUDROCORTISONE [Concomitant]
     Active Substance: FLUDROCORTISONE
     Dosage: UNK
  5. PREDNISONE [Concomitant]
     Active Substance: PREDNISONE
  6. INSULIN NOS [Concomitant]
     Active Substance: INSULIN NOS

REACTIONS (3)
  - Stevens-Johnson syndrome [Unknown]
  - Toxic epidermal necrolysis [Unknown]
  - Off label use [Unknown]
